FAERS Safety Report 21297616 (Version 1)
Quarter: 2022Q3

REPORT INFORMATION
  Report Type: Spontaneous
  Country: JP (occurrence: JP)
  Receive Date: 20220906
  Receipt Date: 20220906
  Transmission Date: 20221027
  Serious: Yes (Death, Other)
  Sender: FDA-Public Use
  Company Number: JP-PFIZER INC-PV202200045079

PATIENT
  Age: 96 Year
  Sex: Male

DRUGS (10)
  1. FRAGMIN [Suspect]
     Active Substance: DALTEPARIN SODIUM
     Indication: Disseminated intravascular coagulation
     Dosage: 225 IU/KG, DAILY
     Dates: start: 20220817, end: 20220818
  2. FRAGMIN [Suspect]
     Active Substance: DALTEPARIN SODIUM
     Dosage: 225 IU/KG (OVER 48 HOURS)
     Dates: start: 20220822
  3. NEOPAREN [Suspect]
     Active Substance: AMINO ACIDS\DEXTROSE\ELECTROLYTES NOS\VITAMINS
     Dosage: UNK
  4. MINERALS [Suspect]
     Active Substance: MINERALS
     Dosage: UNK
  5. GABEXATE MESYLATE [Suspect]
     Active Substance: GABEXATE MESYLATE
     Dosage: UNK
     Dates: start: 20220817, end: 20220818
  6. PREDONINE [Concomitant]
     Active Substance: PREDNISOLONE
  7. LANSOPRAZOLE [Concomitant]
     Active Substance: LANSOPRAZOLE
  8. BUCILLAMINE [Concomitant]
     Active Substance: BUCILLAMINE
  9. PROGRAF [Concomitant]
     Active Substance: TACROLIMUS
  10. VANCOMYCIN [Concomitant]
     Active Substance: VANCOMYCIN

REACTIONS (4)
  - Renal impairment [Fatal]
  - Condition aggravated [Unknown]
  - Off label use [Unknown]
  - Product use issue [Unknown]

NARRATIVE: CASE EVENT DATE: 20220817
